FAERS Safety Report 15221355 (Version 2)
Quarter: 2018Q3

REPORT INFORMATION
  Report Type: Report from Study
  Country: GB (occurrence: GB)
  Receive Date: 20180731
  Receipt Date: 20180802
  Transmission Date: 20181010
  Serious: Yes (Death, Hospitalization)
  Sender: FDA-Public Use
  Company Number: PHHO2018GB006855

PATIENT
  Age: 85 Year
  Sex: Male
  Weight: 74 kg

DRUGS (16)
  1. ACICLOVIR [Concomitant]
     Active Substance: ACYCLOVIR
     Indication: ANTIVIRAL PROPHYLAXIS
     Dosage: 400 MG, BID
     Route: 065
     Dates: start: 20171025
  2. LEVOFLOXACIN. [Concomitant]
     Active Substance: LEVOFLOXACIN
     Indication: ANTIBIOTIC PROPHYLAXIS
     Dosage: 500 MG, QD
     Route: 065
     Dates: start: 20171025, end: 20180523
  3. ELTROMBOPAG [Suspect]
     Active Substance: ELTROMBOPAG
     Indication: MYELODYSPLASTIC SYNDROME
     Dosage: 25 MG, QD
     Route: 048
     Dates: start: 20171113, end: 20180513
  4. AZACITIDINE. [Suspect]
     Active Substance: AZACITIDINE
     Indication: MYELODYSPLASTIC SYNDROME
     Dosage: 145 MG, QD
     Route: 058
     Dates: start: 20171120, end: 20180424
  5. TRANEXAMIC ACID. [Concomitant]
     Active Substance: TRANEXAMIC ACID
     Indication: EPISTAXIS
     Dosage: 1 G, PRN
     Route: 065
     Dates: start: 20180523, end: 20180523
  6. MEROPENEM. [Suspect]
     Active Substance: MEROPENEM
     Indication: PRODUCT USED FOR UNKNOWN INDICATION
     Dosage: 2 MG, BID
     Route: 065
     Dates: start: 20180523, end: 20180531
  7. LORAZEPAM. [Concomitant]
     Active Substance: LORAZEPAM
     Indication: CONFUSIONAL STATE
     Dosage: 500 MG, QD
     Route: 065
     Dates: start: 20180526, end: 20180526
  8. DALTEPARIN [Concomitant]
     Active Substance: DALTEPARIN
     Indication: PROPHYLAXIS
     Dosage: 300 MG, QD
     Route: 065
     Dates: start: 20180524, end: 20180624
  9. ACICLOVIR [Concomitant]
     Active Substance: ACYCLOVIR
     Dosage: 700 MG, QD
     Route: 065
     Dates: start: 20180524, end: 20180527
  10. FUROSEMIDE. [Concomitant]
     Active Substance: FUROSEMIDE
     Indication: DIURETIC THERAPY
     Dosage: 40 MG, QD
     Route: 065
     Dates: start: 20180314, end: 20180523
  11. VANCOMYCIN [Concomitant]
     Active Substance: VANCOMYCIN
     Indication: PRODUCT USED FOR UNKNOWN INDICATION
     Dosage: 1 G, BID
     Route: 065
     Dates: start: 20180525, end: 20180529
  12. LATANOPROST. [Concomitant]
     Active Substance: LATANOPROST
     Indication: GLAUCOMA
     Dosage: 50 MG, QD
     Route: 065
     Dates: start: 2007
  13. POSACONAZOLE [Concomitant]
     Active Substance: POSACONAZOLE
     Dosage: 300 MG, QD
     Route: 065
     Dates: start: 20180531
  14. AMBISONE [Concomitant]
     Active Substance: AMPHOTERICIN B
     Indication: ANTIFUNGAL TREATMENT
     Dosage: 200 MG, QD
     Route: 065
     Dates: start: 20180525, end: 20180529
  15. POSACONAZOLE [Concomitant]
     Active Substance: POSACONAZOLE
     Indication: ANTIFUNGAL PROPHYLAXIS
     Dosage: 300 MG, QD
     Route: 065
     Dates: start: 20180120, end: 20180523
  16. HALOPERIDOL. [Concomitant]
     Active Substance: HALOPERIDOL
     Indication: CONFUSIONAL STATE
     Dosage: 0.5 MG, QD
     Route: 065
     Dates: start: 20180525, end: 20180529

REACTIONS (5)
  - Cardiac failure [Fatal]
  - Pneumonia [Fatal]
  - Dyskinesia [Fatal]
  - Hallucination [Not Recovered/Not Resolved]
  - Confusional state [Not Recovered/Not Resolved]

NARRATIVE: CASE EVENT DATE: 20180516
